FAERS Safety Report 8385336 (Version 2)
Quarter: 2015Q1

REPORT INFORMATION
  Report Type: Report from Study
  Country: US (occurrence: US)
  Receive Date: 20120202
  Receipt Date: 20150303
  Transmission Date: 20150721
  Serious: Yes (Death, Hospitalization, Other)
  Sender: FDA-Public Use
  Company Number: US-ROCHE-1035736

PATIENT
  Age: 83 Year
  Sex: Male

DRUGS (22)
  1. HEXADROL [Concomitant]
     Active Substance: DEXAMETHASONE
     Route: 042
  2. NITROGLYCERINE [Concomitant]
     Active Substance: NITROGLYCERIN
  3. CLONIDINE. [Concomitant]
     Active Substance: CLONIDINE
  4. DIGOXIN. [Concomitant]
     Active Substance: DIGOXIN
  5. FLOMAX (UNITED STATES) [Concomitant]
  6. ZOFRAN [Concomitant]
     Active Substance: ONDANSETRON HYDROCHLORIDE
  7. SUTENT [Concomitant]
     Active Substance: SUNITINIB MALATE
  8. CALCITRIOL. [Concomitant]
     Active Substance: CALCITRIOL
     Route: 065
  9. ARANESP [Concomitant]
     Active Substance: DARBEPOETIN ALFA
     Route: 042
  10. CARDENE [Concomitant]
     Active Substance: NICARDIPINE HYDROCHLORIDE
  11. PEPCID [Concomitant]
     Active Substance: FAMOTIDINE
  12. DEXAMETHASONE. [Concomitant]
     Active Substance: DEXAMETHASONE
     Route: 042
  13. NEXAVAR [Suspect]
     Active Substance: SORAFENIB
     Route: 065
  14. COLACE [Concomitant]
     Active Substance: DOCUSATE SODIUM
  15. PROTONIX (OMEPRAZOLE) [Concomitant]
     Route: 065
  16. TENORMIN [Concomitant]
     Active Substance: ATENOLOL
  17. AVASTIN [Suspect]
     Active Substance: BEVACIZUMAB
     Indication: RENAL CANCER
     Route: 042
  18. AVASTIN [Suspect]
     Active Substance: BEVACIZUMAB
     Indication: MALIGNANT URINARY TRACT NEOPLASM
     Route: 042
  19. HEXADROL [Concomitant]
     Active Substance: DEXAMETHASONE
     Route: 042
  20. NEXAVAR [Suspect]
     Active Substance: SORAFENIB
     Indication: PRODUCT USED FOR UNKNOWN INDICATION
     Route: 065
  21. GRANISETRON [Concomitant]
     Active Substance: GRANISETRON
     Route: 042
  22. BENADRYL [Concomitant]
     Active Substance: DIPHENHYDRAMINE HYDROCHLORIDE
     Route: 042

REACTIONS (38)
  - Abdominal pain [Unknown]
  - Blood pressure fluctuation [Unknown]
  - Confusional state [Unknown]
  - Mental status changes [Unknown]
  - Weight increased [Unknown]
  - Malaise [Unknown]
  - Gait disturbance [Unknown]
  - Leukopenia [Unknown]
  - Fatigue [Unknown]
  - Asthenia [Unknown]
  - Oedema peripheral [Unknown]
  - Nausea [Unknown]
  - Palmar-plantar erythrodysaesthesia syndrome [Unknown]
  - Hyperlipidaemia [Unknown]
  - Cytopenia [Unknown]
  - Staphylococcal sepsis [Unknown]
  - Dysphonia [Unknown]
  - Dry mouth [Unknown]
  - Orthostatic hypotension [Unknown]
  - Drug intolerance [Unknown]
  - Headache [Unknown]
  - Thrombocytopenia [Unknown]
  - Tenderness [Unknown]
  - Off label use [Unknown]
  - Epistaxis [Unknown]
  - Cheilitis [Unknown]
  - Stomatitis [Unknown]
  - Insomnia [Unknown]
  - Peripheral swelling [Unknown]
  - Death [Fatal]
  - Pain [Unknown]
  - Blood pressure increased [Unknown]
  - Coordination abnormal [Unknown]
  - Oral discomfort [Unknown]
  - Dyspnoea [Unknown]
  - Cough [Unknown]
  - Disease progression [Unknown]
  - Pyrexia [Unknown]

NARRATIVE: CASE EVENT DATE: 20070521
